FAERS Safety Report 13422490 (Version 2)
Quarter: 2017Q2

REPORT INFORMATION
  Report Type: Spontaneous
  Country: US (occurrence: US)
  Receive Date: 20170410
  Receipt Date: 20170523
  Transmission Date: 20170830
  Serious: No
  Sender: FDA-Public Use
  Company Number: US-GLAXOSMITHKLINE-US2017GSK050420

PATIENT
  Sex: Male

DRUGS (1)
  1. NUCALA [Suspect]
     Active Substance: MEPOLIZUMAB
     Indication: ASTHMA
     Dosage: UNK
     Route: 058
     Dates: start: 20170119, end: 201703

REACTIONS (17)
  - Nausea [Unknown]
  - Dry mouth [Unknown]
  - Pain [Unknown]
  - Swollen tongue [Unknown]
  - Restlessness [Unknown]
  - Paraesthesia [Unknown]
  - Glossitis [Unknown]
  - Headache [Unknown]
  - Tremor [Unknown]
  - Lip swelling [Unknown]
  - Drug intolerance [Unknown]
  - Discomfort [Unknown]
  - Fatigue [Unknown]
  - Glossodynia [Unknown]
  - Inflammation [Unknown]
  - Tenderness [Unknown]
  - Chest discomfort [Unknown]
